FAERS Safety Report 4568910-2 (Version None)
Quarter: 2005Q1

REPORT INFORMATION
  Report Type: 
  Country: None (occurrence: None)
  Receive Date: 20050113
  Receipt Date: 20050113
  Transmission Date: 20050727
  Serious: Yes (Other)
  Sender: FDA-Public Use
  Company Number: None

PATIENT
  Sex: Male

DRUGS (1)
  1. AZATHIOPRINE [Suspect]
     Indication: MYASTHENIA GRAVIS
     Dosage: 50 MG BID PO BID
     Route: 048

REACTIONS (5)
  - ASTHENIA [None]
  - MALAISE [None]
  - NAUSEA [None]
  - PHARMACEUTICAL PRODUCT COMPLAINT [None]
  - STOMACH DISCOMFORT [None]
